FAERS Safety Report 4526828-5 (Version None)
Quarter: 2004Q4

REPORT INFORMATION
  Report Type: 
  Country: None (occurrence: None)
  Receive Date: 20041213
  Receipt Date: 20040916
  Transmission Date: 20050328
  Serious: Yes (Hospitalization)
  Sender: FDA-Public Use
  Company Number: 2004-00509

PATIENT
  Sex: Female

DRUGS (7)
  1. VELCADE [Suspect]
     Indication: MULTIPLE MYELOMA
     Dosage: 3.50 MG
  2. PREDNISONE [Suspect]
  3. STILNOCT (ZOLPIDEM TARTRATE) [Concomitant]
  4. AVELOX [Concomitant]
  5. EPREX [Concomitant]
  6. BEHEPAN (CYANOCOBALAMIN) [Concomitant]
  7. DELTISON (PREDNISONE, CALCIUM PHOSPHATE, MAGNESIUM TRISILICATE) [Concomitant]

REACTIONS (5)
  - ANAEMIA [None]
  - HYPOXIA [None]
  - INTERSTITIAL LUNG DISEASE [None]
  - PNEUMOCYSTIS CARINII INFECTION [None]
  - RESPIRATORY DISTRESS [None]
